FAERS Safety Report 4327487-7 (Version None)
Quarter: 2004Q1

REPORT INFORMATION
  Report Type: 
  Country: None (occurrence: None)
  Receive Date: 20040329
  Receipt Date: 20040329
  Transmission Date: 20041129
  Serious: Yes (Hospitalization)
  Sender: FDA-Public Use
  Company Number: None

PATIENT
  Age: 10 Year
  Sex: Male
  Weight: 25.5 kg

DRUGS (7)
  1. STRATTERA [Suspect]
     Indication: ATTENTION DEFICIT/HYPERACTIVITY DISORDER
     Dosage: 18 MG PO QD [2 DOSES ONLY]
     Route: 048
     Dates: start: 20030201
  2. STRATTERA [Suspect]
     Indication: ATTENTION DEFICIT/HYPERACTIVITY DISORDER
     Dosage: 18 MG PO QD [2 DOSES ONLY]
     Route: 048
     Dates: start: 20030202
  3. RISPERDONE [Concomitant]
  4. DEPAKOTE [Concomitant]
  5. CELEXA [Concomitant]
  6. BUSPAR [Concomitant]
  7. BENADRYL [Concomitant]

REACTIONS (5)
  - DROOLING [None]
  - DYSPHAGIA [None]
  - EXTRAPYRAMIDAL DISORDER [None]
  - GAIT DISTURBANCE [None]
  - GAZE PALSY [None]
